FAERS Safety Report 5254090-7 (Version None)
Quarter: 2007Q1

REPORT INFORMATION
  Report Type: 
  Country: None (occurrence: None)
  Receive Date: 20070302
  Receipt Date: 20070214
  Transmission Date: 20070707
  Serious: Yes (Death, Other)
  Sender: FDA-Public Use
  Company Number: GB-JNJFOC-20061003175

PATIENT
  Age: 18 Year
  Sex: Female
  Weight: 37 kg

DRUGS (7)
  1. TOPAMAX [Suspect]
     Route: 065
  2. TOPAMAX [Suspect]
     Indication: CONVULSION
     Route: 065
  3. PHENYTOIN [Concomitant]
  4. LEVETORAZEPAM [Concomitant]
  5. VALPROATE SODIUM [Concomitant]
  6. SEDATIVES [Concomitant]
  7. NORADRENALIN [Concomitant]

REACTIONS (8)
  - CONVULSION [None]
  - DEATH [None]
  - GASTROINTESTINAL HAEMORRHAGE [None]
  - MEDICAL DEVICE COMPLICATION [None]
  - OESOPHAGITIS [None]
  - RENAL FAILURE [None]
  - SEPSIS [None]
  - TREATMENT NONCOMPLIANCE [None]
